FAERS Safety Report 11326970 (Version 1)
Quarter: 2015Q3

REPORT INFORMATION
  Report Type: Spontaneous
  Country: US (occurrence: US)
  Receive Date: 20150731
  Receipt Date: 20150731
  Transmission Date: 20151125
  Serious: Yes (Other)
  Sender: FDA-Public Use
  Company Number: US-BRISTOL-MYERS SQUIBB COMPANY-BMS-2015-048977

PATIENT
  Sex: Male

DRUGS (2)
  1. BIAXIN [Interacting]
     Active Substance: CLARITHROMYCIN
     Indication: PRODUCT USED FOR UNKNOWN INDICATION
     Route: 065
  2. SPRYCEL [Suspect]
     Active Substance: DASATINIB
     Indication: CHRONIC MYELOID LEUKAEMIA
     Dosage: 100 MG, UNK
     Route: 048

REACTIONS (10)
  - Pericarditis [Unknown]
  - Pain [Unknown]
  - Alopecia [Unknown]
  - Haematochezia [Unknown]
  - Fatigue [Unknown]
  - Contusion [Unknown]
  - Drug interaction [Unknown]
  - Abdominal pain [Unknown]
  - Nausea [Unknown]
  - Epistaxis [Unknown]
